FAERS Safety Report 9303647 (Version 3)
Quarter: 2013Q3

REPORT INFORMATION
  Report Type: Spontaneous
  Country: US (occurrence: US)
  Receive Date: 20130522
  Receipt Date: 20130724
  Transmission Date: 20140515
  Serious: Yes (Other)
  Sender: FDA-Public Use
  Company Number: US-ABBOTT-13P-163-1090779-00

PATIENT
  Age: 68 Year
  Sex: Female
  Weight: 59.93 kg

DRUGS (8)
  1. HUMIRA [Suspect]
     Indication: ANKYLOSING SPONDYLITIS
     Dates: start: 2010, end: 201304
  2. HUMIRA [Suspect]
     Indication: CROHN^S DISEASE
     Dates: start: 20130612
  3. HUMIRA [Suspect]
     Indication: RHEUMATOID ARTHRITIS
  4. ULTRAM [Concomitant]
     Indication: ANKYLOSING SPONDYLITIS
  5. MOBIC [Concomitant]
     Indication: ANKYLOSING SPONDYLITIS
  6. HYDROCODONE [Concomitant]
     Indication: ANKYLOSING SPONDYLITIS
     Dosage: 5/500
  7. SKELAXIN [Concomitant]
     Indication: ANKYLOSING SPONDYLITIS
  8. LIDODERM [Concomitant]
     Indication: ANKYLOSING SPONDYLITIS
     Dosage: PATCHES

REACTIONS (4)
  - Spinal column stenosis [Recovered/Resolved]
  - Back pain [Not Recovered/Not Resolved]
  - Back pain [Not Recovered/Not Resolved]
  - Fall [Recovering/Resolving]
